FAERS Safety Report 17414271 (Version 1)
Quarter: 2020Q1

REPORT INFORMATION
  Report Type: Report from Study
  Country: US (occurrence: US)
  Receive Date: 20200213
  Receipt Date: 20200213
  Transmission Date: 20200409
  Serious: Yes (Other)
  Sender: FDA-Public Use
  Company Number: US-PFIZER INC-2020058778

PATIENT

DRUGS (7)
  1. MITOXANTRONE HCL [Suspect]
     Active Substance: MITOXANTRONE HYDROCHLORIDE
     Indication: B-CELL TYPE ACUTE LEUKAEMIA
     Dosage: 10 MG/M2, CYCLIC (10MG/M2/DOSE DAYS 8 AND 9)
  2. VINCRISTINE SULFATE. [Suspect]
     Active Substance: VINCRISTINE SULFATE
     Indication: B-CELL TYPE ACUTE LEUKAEMIA
     Dosage: 1.5 MG/M2, CYCLIC ((1.5MG/M2/DOSE (MAX DOSE 2MG) DAYS 10, 17, 24 AND 31)
  3. METHOTREXATE SODIUM. [Suspect]
     Active Substance: METHOTREXATE SODIUM
     Indication: B-CELL TYPE ACUTE LEUKAEMIA
     Dosage: UNK (DOSED BY AGE AND CNS STATUS)
     Route: 037
  4. VORINOSTAT [Suspect]
     Active Substance: VORINOSTAT
     Indication: B-CELL TYPE ACUTE LEUKAEMIA
     Dosage: 180 MG/M2, CYCLIC (180MG/M2/DOSE, TABLET OR SUSPENSION, MAX DOSE 400MG DAILY, DAYS 3-10 AND 17-24)
     Route: 048
  5. PEG/L-ASPARAGINASE [Suspect]
     Active Substance: PEGASPARGASE
     Indication: B-CELL TYPE ACUTE LEUKAEMIA
     Dosage: 2500 IU/M2/DOSE DAYS 10 AND 24)
  6. DEXAMETHASONE. [Suspect]
     Active Substance: DEXAMETHASONE
     Indication: B-CELL TYPE ACUTE LEUKAEMIA
     Dosage: 20MG/M2/DOSE DIVIDED TWICE DAILY DAYS 8-12 AND 22-26
  7. DECITABINE. [Suspect]
     Active Substance: DECITABINE
     Indication: B-CELL TYPE ACUTE LEUKAEMIA
     Dosage: 15 MG/M2, CYCLIC (ON DAYS 1-7 AND 15-21)
     Route: 042

REACTIONS (3)
  - Hyperbilirubinaemia [Unknown]
  - Hepatic steatosis [Unknown]
  - Cholestasis [Unknown]
